FAERS Safety Report 12324905 (Version 1)
Quarter: 2016Q2

REPORT INFORMATION
  Report Type: Other
  Country: GB (occurrence: GB)
  Receive Date: 20160502
  Receipt Date: 20160502
  Transmission Date: 20160815
  Serious: Yes (Other)
  Sender: FDA-Public Use
  Company Number: GB-MYLANLABS-2016M1017731

PATIENT

DRUGS (1)
  1. CLOPIDOGREL [Suspect]
     Active Substance: CLOPIDOGREL BISULFATE
     Dosage: UNK

REACTIONS (11)
  - Amnesia [Unknown]
  - Facial paralysis [Unknown]
  - Malaise [Unknown]
  - Mouth swelling [Unknown]
  - Myalgia [Unknown]
  - Abdominal pain upper [Unknown]
  - Eye disorder [Unknown]
  - Dizziness [Unknown]
  - Headache [Unknown]
  - Sensory loss [Unknown]
  - Haemorrhage [Unknown]
